FAERS Safety Report 7390138-1 (Version None)
Quarter: 2011Q2

REPORT INFORMATION
  Report Type: 
  Country: None (occurrence: None)
  Receive Date: 20110401
  Receipt Date: 20110321
  Transmission Date: 20111010
  Serious: Yes (Other)
  Sender: FDA-Public Use
  Company Number: PHHY2011FR15261

PATIENT
  Sex: Female

DRUGS (8)
  1. SANDIMMUNE [Suspect]
     Indication: PROCTOCOLITIS
     Dosage: 100 MG, BID
     Dates: start: 20110223
  2. SANDIMMUNE [Suspect]
     Dosage: 50 MG/ML, UNK
     Dates: start: 20110223
  3. OFLOCET [Concomitant]
     Dosage: 200 MG,
     Route: 048
  4. FLAGYL [Concomitant]
     Dosage: 500 MG,
     Route: 048
  5. SOLU-MEDROL [Concomitant]
  6. REMICADE [Concomitant]
  7. PERFALGAN [Concomitant]
  8. SPASFON [Concomitant]

REACTIONS (7)
  - RASH [None]
  - DRUG HYPERSENSITIVITY [None]
  - HOT FLUSH [None]
  - DYSPNOEA [None]
  - CHILLS [None]
  - CHEST PAIN [None]
  - DRUG ADMINISTRATION ERROR [None]
